FAERS Safety Report 21189047 (Version 2)
Quarter: 2022Q3

REPORT INFORMATION
  Report Type: Report from Study
  Country: CO (occurrence: CO)
  Receive Date: 20220809
  Receipt Date: 20220826
  Transmission Date: 20221027
  Serious: Yes (Hospitalization, Other)
  Sender: FDA-Public Use
  Company Number: CO-UCBSA-2022042518

PATIENT
  Age: 57 Year
  Sex: Male

DRUGS (1)
  1. CERTOLIZUMAB PEGOL [Suspect]
     Active Substance: CERTOLIZUMAB PEGOL
     Indication: Rheumatoid arthritis
     Dosage: 400 MILLIGRAM, EV 4 WEEKS
     Route: 058
     Dates: start: 20190629, end: 20220611

REACTIONS (3)
  - Surgery [Recovered/Resolved]
  - Postoperative wound infection [Recovering/Resolving]
  - Device loosening [Unknown]

NARRATIVE: CASE EVENT DATE: 20220615
